FAERS Safety Report 15636491 (Version 1)
Quarter: 2018Q4

REPORT INFORMATION
  Report Type: Spontaneous
  Country: US (occurrence: US)
  Receive Date: 20181120
  Receipt Date: 20181120
  Transmission Date: 20190205
  Serious: No
  Sender: FDA-Public Use
  Company Number: PHEH2018US048259

PATIENT
  Sex: Female

DRUGS (1)
  1. COSENTYX [Suspect]
     Active Substance: SECUKINUMAB
     Indication: ANKYLOSING SPONDYLITIS
     Dosage: 150 MG, QMO
     Route: 058
     Dates: start: 20180123

REACTIONS (6)
  - Nasal mucosal discolouration [Unknown]
  - Body temperature abnormal [Unknown]
  - Fatigue [Unknown]
  - Pyrexia [Unknown]
  - Sinusitis [Unknown]
  - Chills [Unknown]
